FAERS Safety Report 10308100 (Version 1)
Quarter: 2014Q3

REPORT INFORMATION
  Report Type: Spontaneous
  Country: TR (occurrence: None)
  Receive Date: 20140711
  Receipt Date: 20140711
  Transmission Date: 20150326
  Serious: Yes (Hospitalization)
  Sender: FDA-Public Use
  Company Number: FK201402707

PATIENT
  Age: 45 Year
  Sex: Male

DRUGS (1)
  1. METHOTREXATE (MANUFACTURER UNKNOWN) (METHOTREXATE) (METHOTREXATE) [Suspect]
     Active Substance: METHOTREXATE
     Indication: PSORIASIS
     Route: 030

REACTIONS (13)
  - Neutrophil count decreased [None]
  - Alanine aminotransferase increased [None]
  - Occult blood positive [None]
  - Toxicity to various agents [None]
  - Accidental overdose [None]
  - Medication error [None]
  - Stomatitis [None]
  - Pyrexia [None]
  - Mouth ulceration [None]
  - Psoriasis [None]
  - Platelet count decreased [None]
  - Aspartate aminotransferase increased [None]
  - Rash pustular [None]
